FAERS Safety Report 15651645 (Version 2)
Quarter: 2018Q4

REPORT INFORMATION
  Report Type: Spontaneous
  Country: US (occurrence: US)
  Receive Date: 20181123
  Receipt Date: 20181127
  Transmission Date: 20190205
  Serious: Yes (Other)
  Sender: FDA-Public Use
  Company Number: US-PFIZER INC-2018477984

PATIENT
  Age: 57 Year
  Sex: Female
  Weight: 113 kg

DRUGS (5)
  1. LYRICA [Suspect]
     Active Substance: PREGABALIN
     Indication: FIBROMYALGIA
     Dosage: 150 MG, UNK (2-3 TIMES A DAY)
     Route: 048
     Dates: end: 201810
  2. LYRICA [Suspect]
     Active Substance: PREGABALIN
     Indication: NEUROPATHY PERIPHERAL
  3. LEVEMIR [Concomitant]
     Active Substance: INSULIN DETEMIR
     Indication: DIABETES MELLITUS
     Dosage: UNK, 2X/DAY (30 UNITS INJECTION IN THE MORNING AND 35 UNITS AT NIGHT)
  4. NOVOLOG [Concomitant]
     Active Substance: INSULIN ASPART
     Indication: DIABETES MELLITUS
     Dosage: UNK (SLIDING SCALE INJECTION)
  5. TYLENOL 8HR [Concomitant]
     Active Substance: ACETAMINOPHEN
     Indication: ARTHRITIS
     Dosage: 1000 MG, DAILY (500 MG EXTRA STRENGTH TABLETS BY MOUTH IN THE MORNING AND TWO 500 MG AT NIGHT)
     Route: 048

REACTIONS (10)
  - Malaise [Not Recovered/Not Resolved]
  - Feeling of body temperature change [Unknown]
  - Abdominal discomfort [Unknown]
  - Renal cancer stage III [Unknown]
  - Neuropathy peripheral [Unknown]
  - Loss of personal independence in daily activities [Unknown]
  - Insomnia [Unknown]
  - Neoplasm malignant [Recovered/Resolved]
  - Pain [Not Recovered/Not Resolved]
  - Feeling abnormal [Unknown]

NARRATIVE: CASE EVENT DATE: 2016
